FAERS Safety Report 18375236 (Version 1)
Quarter: 2020Q4

REPORT INFORMATION
  Report Type: Spontaneous
  Country: IR (occurrence: IR)
  Receive Date: 20201013
  Receipt Date: 20201013
  Transmission Date: 20210114
  Serious: Yes (Hospitalization, Other)
  Sender: FDA-Public Use
  Company Number: IR-LUPIN PHARMACEUTICALS INC.-2020-04839

PATIENT
  Age: 32 Month
  Sex: Female

DRUGS (1)
  1. DICLOFENAC [Suspect]
     Active Substance: DICLOFENAC
     Indication: PYREXIA
     Dosage: UNK UNK, SINGLE DOSE (SUPPOSITORY)
     Route: 054

REACTIONS (2)
  - Toxic epidermal necrolysis [Recovering/Resolving]
  - Off label use [Unknown]
